FAERS Safety Report 7555662-7 (Version None)
Quarter: 2011Q2

REPORT INFORMATION
  Report Type: 
  Country: None (occurrence: None)
  Receive Date: 20110617
  Receipt Date: 20080114
  Transmission Date: 20111010
  Serious: Yes (Hospitalization)
  Sender: FDA-Public Use
  Company Number: PHMT2007CA02117

PATIENT
  Sex: Male

DRUGS (1)
  1. SANDOSTATIN LAR [Suspect]
     Indication: CARCINOID TUMOUR
     Route: 030
     Dates: start: 20050603

REACTIONS (13)
  - PYREXIA [None]
  - ASTHMA [None]
  - POOR PERIPHERAL CIRCULATION [None]
  - DYSPNOEA [None]
  - ASTHENIA [None]
  - DIARRHOEA [None]
  - PAIN [None]
  - EYE SWELLING [None]
  - SWELLING FACE [None]
  - GENERAL PHYSICAL HEALTH DETERIORATION [None]
  - THROMBOSIS [None]
  - FLUSHING [None]
  - OEDEMA [None]
